FAERS Safety Report 7319267-5 (Version None)
Quarter: 2011Q1

REPORT INFORMATION
  Report Type: 
  Country: None (occurrence: None)
  Receive Date: 20110228
  Receipt Date: 20100105
  Transmission Date: 20110831
  Serious: No
  Sender: FDA-Public Use
  Company Number: A0837915A

PATIENT
  Age: 42 Year
  Sex: Female

DRUGS (1)
  1. LAMICTAL [Suspect]
     Indication: ANXIETY
     Dosage: 25MG UNKNOWN
     Route: 048
     Dates: start: 20091130, end: 20100103

REACTIONS (9)
  - LYMPHADENOPATHY [None]
  - ANXIETY [None]
  - DIZZINESS [None]
  - DECREASED APPETITE [None]
  - ABDOMINAL PAIN UPPER [None]
  - PAIN [None]
  - ASTHENIA [None]
  - DEPRESSION [None]
  - WEIGHT DECREASED [None]
